FAERS Safety Report 11875219 (Version 2)
Quarter: 2016Q1

REPORT INFORMATION
  Report Type: Spontaneous
  Country: IT (occurrence: IT)
  Receive Date: 20151229
  Receipt Date: 20160106
  Transmission Date: 20160526
  Serious: Yes (Other)
  Sender: FDA-Public Use
  Company Number: IT-TEVA-620656ACC

PATIENT
  Age: 90 Year
  Sex: Female
  Weight: 70 kg

DRUGS (5)
  1. COUMADIN [Concomitant]
     Active Substance: WARFARIN SODIUM
     Indication: ATRIAL FIBRILLATION
     Dosage: 5 MG
     Route: 048
     Dates: end: 20151217
  2. TRIATEC - 2.5 MG COMPRESSE [Concomitant]
     Indication: PRODUCT USED FOR UNKNOWN INDICATION
     Dosage: 2.5 MG
     Route: 048
     Dates: start: 20130101, end: 20151217
  3. COLCHICINA LIRCA - 1 MG COMPRESSE [Interacting]
     Active Substance: COLCHICINE
     Indication: GOUT
     Dosage: 1 MILLIGRAM DAILY;
     Route: 048
     Dates: start: 20150101, end: 20151207
  4. METFORMINA TEVA - 850 MG CPR RIVESTITE - TEVA ITALIA S.R.L. [Suspect]
     Active Substance: METFORMIN HYDROCHLORIDE
     Indication: TYPE 2 DIABETES MELLITUS
     Dosage: 850 MILLIGRAM DAILY;
     Route: 048
     Dates: start: 20130101, end: 20151207
  5. CARDICOR - 1.25 MG  COMPRESSE [Concomitant]
     Indication: HYPERTENSION
     Dosage: 1.25 DF
     Route: 030
     Dates: start: 20110101, end: 20151217

REACTIONS (2)
  - Pancreatitis acute [Recovered/Resolved]
  - Drug interaction [Unknown]

NARRATIVE: CASE EVENT DATE: 20151207
